FAERS Safety Report 12877951 (Version 2)
Quarter: 2017Q1

REPORT INFORMATION
  Report Type: Spontaneous
  Country: JP (occurrence: JP)
  Receive Date: 20161024
  Receipt Date: 20170106
  Transmission Date: 20170428
  Serious: Yes (Other)
  Sender: FDA-Public Use
  Company Number: JP-TEVA-703516ISR

PATIENT
  Age: 75 Year
  Sex: Male
  Weight: 48 kg

DRUGS (1)
  1. WARFARIN [Suspect]
     Active Substance: WARFARIN
     Indication: CEREBRAL ARTERY EMBOLISM
     Route: 065

REACTIONS (3)
  - Muscle haemorrhage [Recovering/Resolving]
  - Anaemia [Recovering/Resolving]
  - Tachycardia [Unknown]
